FAERS Safety Report 10874557 (Version 1)
Quarter: 2015Q1

REPORT INFORMATION
  Report Type: Spontaneous
  Country: US (occurrence: US)
  Receive Date: 20150227
  Receipt Date: 20150227
  Transmission Date: 20150721
  Serious: No
  Sender: FDA-Public Use
  Company Number: US-GLAXOSMITHKLINE-US2015010702

PATIENT
  Sex: Female

DRUGS (2)
  1. PRAVASTATIN [Concomitant]
     Active Substance: PRAVASTATIN\PRAVASTATIN SODIUM
  2. RYTHMOL SR [Suspect]
     Active Substance: PROPAFENONE HYDROCHLORIDE
     Indication: CARDIAC DISORDER
     Dosage: 425 MG, BID
     Route: 048

REACTIONS (4)
  - Atrioventricular block [Not Recovered/Not Resolved]
  - Chest pain [Not Recovered/Not Resolved]
  - Dyspnoea [Not Recovered/Not Resolved]
  - Catheterisation cardiac [Unknown]
